FAERS Safety Report 8318714 (Version 3)
Quarter: 2013Q1

REPORT INFORMATION
  Report Type: Spontaneous
  Country: US (occurrence: US)
  Receive Date: 20120103
  Receipt Date: 20130221
  Transmission Date: 20140127
  Serious: Yes (Life-Threatening, Congenital Anomaly, Other)
  Sender: FDA-Public Use
  Company Number: US-PFIZER INC-2011288484

PATIENT
  Sex: Female
  Weight: 4 kg

DRUGS (9)
  1. ZOLOFT [Suspect]
     Dosage: 50 MG, 1X/DAY
     Route: 064
     Dates: start: 200907
  2. ZOFRAN [Concomitant]
     Dosage: 8 MG, ONE TABLET EVERY 8 HOURS AND AS NEEDED
     Route: 064
     Dates: start: 20091013
  3. LORAZEPAM [Concomitant]
     Dosage: 0.5 MG, AS NEEDED
     Route: 064
     Dates: start: 20091016
  4. REGLAN [Concomitant]
     Indication: NAUSEA
     Dosage: 10 MG, UNK
     Route: 064
     Dates: start: 20091017
  5. KEFLEX [Concomitant]
     Dosage: 500 MG, 2X/DAY
     Route: 064
     Dates: start: 20091017
  6. ACETAMINOPHEN [Concomitant]
     Dosage: 975 MG, UNK
     Route: 064
     Dates: start: 20091017
  7. PRENATAL VITAMINS [Concomitant]
     Dosage: ONE TABLET DAILY
     Route: 064
  8. TYLENOL [Concomitant]
     Dosage: UNK, AS NEEDED
     Route: 064
  9. IBUPROFEN [Concomitant]
     Dosage: UNK, AS NEEDED
     Route: 064

REACTIONS (4)
  - Maternal exposure timing unspecified [Unknown]
  - Ventricular septal defect [Unknown]
  - Congenital anomaly [Unknown]
  - Hypoventilation [Unknown]
